APPROVED DRUG PRODUCT: IBRANCE
Active Ingredient: PALBOCICLIB
Strength: 100MG
Dosage Form/Route: CAPSULE;ORAL
Application: N207103 | Product #002
Applicant: PFIZER INC
Approved: Feb 3, 2015 | RLD: Yes | RS: No | Type: RX

PATENTS:
Patent 10723730 | Expires: Feb 8, 2034
Patent RE47739 | Expires: Mar 5, 2027
Patent RE47739*PED | Expires: Sep 5, 2027
Patent 10723730*PED | Expires: Aug 8, 2034

EXCLUSIVITY:
Code: M-14 | Date: Sep 16, 2028
Code: PED | Date: Mar 16, 2029